FAERS Safety Report 18228557 (Version 4)
Quarter: 2020Q4

REPORT INFORMATION
  Report Type: Spontaneous
  Country: IN (occurrence: IN)
  Receive Date: 20200903
  Receipt Date: 20201214
  Transmission Date: 20210113
  Serious: Yes (Other)
  Sender: FDA-Public Use
  Company Number: IN-PFIZER INC-2019342257

PATIENT
  Age: 79 Year
  Sex: Female

DRUGS (10)
  1. PALBACE [Suspect]
     Active Substance: PALBOCICLIB
     Indication: BREAST CANCER METASTATIC
     Dosage: 100 MG, 1X/DAY
     Route: 048
     Dates: start: 20190808
  2. PALBACE [Suspect]
     Active Substance: PALBOCICLIB
     Dosage: 100 MG, 1X/DAY (CYCLE 2)
     Route: 048
     Dates: start: 20200623, end: 20200713
  3. PAN D [DOMPERIDONE;PANTOPRAZOLE SODIUM SESQUIHYDRATE] [Concomitant]
     Dosage: 1 DF, ALTERNATE DAY (1-0-0)
  4. LIVOGEN [FERROUS ASCORBATE;FOLIC ACID] [Concomitant]
     Dosage: 1 DF, 1X/DAY (0-0-1)
  5. PALBACE [Suspect]
     Active Substance: PALBOCICLIB
     Dosage: 100 MG, 1X/DAY (0-0-1)
     Route: 048
     Dates: start: 20201113, end: 20201130
  6. PAN D [DOMPERIDONE;PANTOPRAZOLE SODIUM SESQUIHYDRATE] [Concomitant]
     Dosage: 1 DF, 1X/DAY (1-0-0)
  7. CCM [Concomitant]
     Dosage: 1 DF, 1X/DAY
  8. CCM [Concomitant]
     Dosage: 1 DF, ALTERNATE DAY (0-1-0 (ALT DAY)
  9. PALBACE [Suspect]
     Active Substance: PALBOCICLIB
     Dosage: 100 MG, 1X/DAY (14TH CYCLE)
     Route: 048
     Dates: start: 20201016, end: 20201103
  10. LETROZOLE. [Concomitant]
     Active Substance: LETROZOLE
     Dosage: 2.5 MG, 1X/DAY (0-0-1)

REACTIONS (10)
  - Back pain [Unknown]
  - Haemoglobin decreased [Unknown]
  - Abdominal discomfort [Recovered/Resolved]
  - Neutrophil percentage decreased [Unknown]
  - Lymphocyte percentage increased [Unknown]
  - Platelet count decreased [Unknown]
  - Blood cholesterol increased [Unknown]
  - Low density lipoprotein increased [Unknown]
  - Dizziness [Recovered/Resolved]
  - Blood creatinine increased [Unknown]

NARRATIVE: CASE EVENT DATE: 20200818
